FAERS Safety Report 12547575 (Version 1)
Quarter: 2016Q3

REPORT INFORMATION
  Report Type: Spontaneous
  Country: FR (occurrence: FR)
  Receive Date: 20160712
  Receipt Date: 20160712
  Transmission Date: 20161109
  Serious: Yes (Hospitalization, Disabling)
  Sender: FDA-Public Use
  Company Number: FR-BAXTER-2015BAX013547

PATIENT
  Age: 45 Year
  Sex: Female

DRUGS (10)
  1. HERCEPTIN [Suspect]
     Active Substance: TRASTUZUMAB
     Dosage: RESUMED ON D21
     Route: 042
     Dates: start: 20150114, end: 20150204
  2. ENDOXAN 1000 MG, POUDRE POUR SOLUTION INJECTABLE [Suspect]
     Active Substance: CYCLOPHOSPHAMIDE
     Dosage: 2ND COURSE
     Route: 065
     Dates: start: 20141112, end: 20141112
  3. PACLITAXEL. [Suspect]
     Active Substance: PACLITAXEL
     Dosage: DOSE RESUMED ON DAY 21
     Route: 042
     Dates: end: 20150218
  4. EPIRUBICINE [Suspect]
     Active Substance: EPIRUBICIN
     Indication: BREAST CANCER
     Dosage: 1ST COURSE
     Route: 065
     Dates: start: 20141021, end: 20141021
  5. EPIRUBICINE [Suspect]
     Active Substance: EPIRUBICIN
     Dosage: 3RD COURSE
     Route: 065
     Dates: start: 20141203, end: 20141203
  6. ENDOXAN 1000 MG, POUDRE POUR SOLUTION INJECTABLE [Suspect]
     Active Substance: CYCLOPHOSPHAMIDE
     Indication: BREAST CANCER
     Dosage: 1ST COURSE
     Route: 065
     Dates: start: 20141021, end: 20141021
  7. HERCEPTIN [Suspect]
     Active Substance: TRASTUZUMAB
     Indication: BREAST CANCER
     Dosage: D1, D8, D15
     Route: 042
     Dates: start: 20141224
  8. ENDOXAN 1000 MG, POUDRE POUR SOLUTION INJECTABLE [Suspect]
     Active Substance: CYCLOPHOSPHAMIDE
     Dosage: 3RD COURSE
     Route: 065
     Dates: start: 20141203, end: 20141203
  9. EPIRUBICINE [Suspect]
     Active Substance: EPIRUBICIN
     Dosage: 2ND COURSE
     Route: 065
     Dates: start: 20141112, end: 20141112
  10. PACLITAXEL. [Suspect]
     Active Substance: PACLITAXEL
     Indication: BREAST CANCER
     Dosage: ON D1, D8, D15
     Route: 042
     Dates: start: 20141224

REACTIONS (1)
  - Lung disorder [Not Recovered/Not Resolved]

NARRATIVE: CASE EVENT DATE: 20150218
